FAERS Safety Report 9181399 (Version 4)
Quarter: 2013Q4

REPORT INFORMATION
  Report Type: Spontaneous
  Country: US (occurrence: US)
  Receive Date: 20130322
  Receipt Date: 20131023
  Transmission Date: 20140711
  Serious: Yes (Death, Hospitalization, Other)
  Sender: FDA-Public Use
  Company Number: US-ASTELLAS-2013US003128

PATIENT
  Age: 79 Year
  Sex: Male
  Weight: 89 kg

DRUGS (2)
  1. XTANDI [Suspect]
     Indication: PROSTATE CANCER
     Dosage: 160 MG, UID/QD
     Route: 048
     Dates: start: 20121129, end: 20130124
  2. TAXOTERE [Suspect]
     Indication: PROSTATE CANCER
     Dosage: U
     Route: 065

REACTIONS (11)
  - Death [Fatal]
  - Muscular weakness [Unknown]
  - Fall [Unknown]
  - Anaemia [Unknown]
  - Neuropathy peripheral [Unknown]
  - Hypertension [Unknown]
  - Radiculopathy [Unknown]
  - Constipation [Unknown]
  - Metastases to spine [Unknown]
  - Metastases to bone [Unknown]
  - Cancer pain [Recovering/Resolving]
